FAERS Safety Report 17580306 (Version 1)
Quarter: 2020Q1

REPORT INFORMATION
  Report Type: Spontaneous
  Country: US (occurrence: US)
  Receive Date: 20200325
  Receipt Date: 20200325
  Transmission Date: 20200409
  Serious: Yes (Hospitalization)
  Sender: FDA-Public Use
  Company Number: None

PATIENT
  Age: 80 Year
  Sex: Male

DRUGS (11)
  1. EZETIMBE [Concomitant]
     Active Substance: EZETIMIBE
  2. VIRT-CAPS [Concomitant]
     Active Substance: ASCORBIC ACID\BIOTIN\CALCIUM PANTOTHENATE\CYANOCOBALAMIN\FOLIC ACID\NIACINAMIDE\PYRIDOXINE HYDROCHLORIDE\RIBOFLAVIN\THIAMINE MONONITRATE
  3. A-HYDROCORT [Concomitant]
     Active Substance: HYDROCORTISONE SODIUM SUCCINATE
  4. CEPHALEXIN. [Concomitant]
     Active Substance: CEPHALEXIN
  5. NEPHRO VITE RX [Concomitant]
     Active Substance: ASCORBIC ACID\BIOTIN\CALCIUM PANTOTHENATE\CYANOCOBALAMIN\FOLIC ACID\NIACINAMIDE\PYRIDOXINE HYDROCHLORIDE\RIBOFLAVIN\THIAMINE MONONITRATE
  6. WARFARIN [Concomitant]
     Active Substance: WARFARIN
  7. FOLIC ACID. [Concomitant]
     Active Substance: FOLIC ACID
  8. METOPROLOL TARTRATE. [Concomitant]
     Active Substance: METOPROLOL TARTRATE
  9. SILDENAFIL. [Suspect]
     Active Substance: SILDENAFIL
     Dosage: ?          OTHER FREQUENCY:THREE TIMES A DAY;?
     Route: 048
     Dates: start: 20181114
  10. PANTOPRAZOLE [Concomitant]
     Active Substance: PANTOPRAZOLE
  11. SERTRALINE [Concomitant]
     Active Substance: SERTRALINE HYDROCHLORIDE

REACTIONS (3)
  - Blood pressure decreased [None]
  - Fall [None]
  - Head injury [None]

NARRATIVE: CASE EVENT DATE: 20200320
